FAERS Safety Report 15690252 (Version 1)
Quarter: 2018Q4

REPORT INFORMATION
  Report Type: Report from Study
  Country: US (occurrence: US)
  Receive Date: 20181205
  Receipt Date: 20181205
  Transmission Date: 20190205
  Serious: No
  Sender: FDA-Public Use
  Company Number: US-DOVA PHARMACEUTICALS INC.-DOV-000193

PATIENT
  Age: 52 Year
  Sex: Female

DRUGS (1)
  1. DOPTELET [Suspect]
     Active Substance: AVATROMBOPAG MALEATE
     Indication: CIRRHOSIS ALCOHOLIC
     Dosage: 20 MG, BID
     Route: 048
     Dates: start: 20181103

REACTIONS (1)
  - Headache [Unknown]
